FAERS Safety Report 12313417 (Version 1)
Quarter: 2016Q2

REPORT INFORMATION
  Report Type: Spontaneous
  Country: US (occurrence: None)
  Receive Date: 20160427
  Receipt Date: 20160427
  Transmission Date: 20160815
  Serious: No
  Sender: FDA-Public Use
  Company Number: None

PATIENT
  Age: 25 Year
  Sex: Female
  Weight: 68.04 kg

DRUGS (2)
  1. LOW DOSE BIRTH CONTROL [Concomitant]
  2. TRI-LO- ESTARYLLA [Suspect]
     Active Substance: ETHINYL ESTRADIOL\NORGESTIMATE
     Indication: CONTRACEPTION
     Route: 048
     Dates: start: 20160408, end: 20160425

REACTIONS (14)
  - Depression [None]
  - Pain in extremity [None]
  - Back pain [None]
  - Migraine [None]
  - Irritability [None]
  - Mood swings [None]
  - Fatigue [None]
  - Abnormal dreams [None]
  - Breast pain [None]
  - Musculoskeletal pain [None]
  - Nausea [None]
  - Weight increased [None]
  - Abdominal pain [None]
  - Anxiety [None]

NARRATIVE: CASE EVENT DATE: 20160424
